FAERS Safety Report 13029118 (Version 6)
Quarter: 2017Q3

REPORT INFORMATION
  Report Type: Report from Study
  Country: CA (occurrence: CA)
  Receive Date: 20161215
  Receipt Date: 20170908
  Transmission Date: 20171127
  Serious: Yes (Hospitalization, Other)
  Sender: FDA-Public Use
  Company Number: CA-ROCHE-1106928

PATIENT
  Age: 84 Year
  Sex: Female
  Weight: 56 kg

DRUGS (13)
  1. ACETAMINOPHEN. [Concomitant]
     Active Substance: ACETAMINOPHEN
     Indication: PREMEDICATION
     Route: 048
     Dates: start: 20120814, end: 20120814
  2. PREDNISONE. [Suspect]
     Active Substance: PREDNISONE
     Indication: PRODUCT USED FOR UNKNOWN INDICATION
     Dosage: DROPPED DOSE TO HALF
     Route: 065
  3. DIPHENHYDRAMINE HCL [Concomitant]
     Active Substance: DIPHENHYDRAMINE HYDROCHLORIDE
     Indication: PREMEDICATION
     Route: 048
     Dates: start: 20120814, end: 20120814
  4. ACETAMINOPHEN. [Concomitant]
     Active Substance: ACETAMINOPHEN
     Route: 048
     Dates: start: 20091130
  5. PARIET [Concomitant]
     Active Substance: RABEPRAZOLE SODIUM
  6. SIMVASTATIN. [Concomitant]
     Active Substance: SIMVASTATIN
  7. METHYLPREDNISOLONE. [Concomitant]
     Active Substance: METHYLPREDNISOLONE
     Indication: PREMEDICATION
     Route: 042
     Dates: start: 20120814, end: 20120814
  8. RITUXAN [Suspect]
     Active Substance: RITUXIMAB
     Indication: RHEUMATOID ARTHRITIS
     Dosage: PREVIOUS RITUXIMAB INFUSION ON 17/JUL/2014?LAST DOSE: 18/DEC/2014,?PREVIOUS RITUXAN DOSE WAS RECEIVE
     Route: 042
     Dates: start: 20091130
  9. CODEINE [Concomitant]
     Active Substance: CODEINE
  10. DIPHENHYDRAMINE HCL [Concomitant]
     Active Substance: DIPHENHYDRAMINE HYDROCHLORIDE
     Route: 048
     Dates: start: 20091130
  11. RAN-RABEPRAZOLE [Concomitant]
  12. SYNTHROID [Concomitant]
     Active Substance: LEVOTHYROXINE SODIUM
  13. METHYLPREDNISOLONE. [Concomitant]
     Active Substance: METHYLPREDNISOLONE
     Route: 042
     Dates: start: 20091130

REACTIONS (34)
  - Urticaria [Not Recovered/Not Resolved]
  - Rhinorrhoea [Not Recovered/Not Resolved]
  - Blood pressure increased [Unknown]
  - Blood pressure abnormal [Unknown]
  - Infusion related reaction [Unknown]
  - Upper limb fracture [Unknown]
  - Pancreatic carcinoma [Not Recovered/Not Resolved]
  - Blood pressure diastolic increased [Unknown]
  - Urinary tract infection [Not Recovered/Not Resolved]
  - Cough [Unknown]
  - Malaise [Not Recovered/Not Resolved]
  - Fall [Unknown]
  - Wrist fracture [Unknown]
  - Atelectasis [Not Recovered/Not Resolved]
  - Influenza like illness [Not Recovered/Not Resolved]
  - Urticaria [Unknown]
  - Blood pressure fluctuation [Unknown]
  - Vessel puncture site haematoma [Unknown]
  - Anxiety [Unknown]
  - Laceration [Unknown]
  - Feeling abnormal [Unknown]
  - Abdominal pain upper [Not Recovered/Not Resolved]
  - Hiatus hernia [Not Recovered/Not Resolved]
  - Weight decreased [Not Recovered/Not Resolved]
  - Pyrexia [Unknown]
  - Cough [Not Recovered/Not Resolved]
  - Malaise [Not Recovered/Not Resolved]
  - Influenza [Not Recovered/Not Resolved]
  - Blood urine present [Not Recovered/Not Resolved]
  - Abdominal pain [Not Recovered/Not Resolved]
  - Contusion [Unknown]
  - Rheumatoid arthritis [Not Recovered/Not Resolved]
  - Pruritus [Unknown]
  - Asthenia [Not Recovered/Not Resolved]

NARRATIVE: CASE EVENT DATE: 20120814
